FAERS Safety Report 9912545 (Version 1)
Quarter: 2014Q1

REPORT INFORMATION
  Report Type: Spontaneous
  Country: US (occurrence: None)
  Receive Date: 20140218
  Receipt Date: 20140218
  Transmission Date: 20141002
  Serious: No
  Sender: FDA-Public Use
  Company Number: None

PATIENT
  Age: 50 Year
  Sex: Female

DRUGS (14)
  1. LATUDA 40 MG SUNOVION [Suspect]
     Indication: PSYCHOTIC DISORDER
     Dosage: 1 PILL   QD ORAL?ONE DOSE
     Route: 048
  2. BUSPIRONE [Concomitant]
  3. CYCLOBENZAPRINE [Concomitant]
  4. LEVOTHYROXINE [Concomitant]
  5. TOPIRAMATE [Concomitant]
  6. ACETAMINOPHEN [Concomitant]
  7. PROVENTIL [Concomitant]
  8. DIPHENHYDRAMINE [Concomitant]
  9. IBUPROFEN [Concomitant]
  10. LOPERAMIDE [Concomitant]
  11. MAALOX [Concomitant]
  12. MILK OF MAGNESIA [Concomitant]
  13. OLANZAPINE [Concomitant]
  14. TRAZODONE [Concomitant]

REACTIONS (1)
  - Hypoaesthesia [None]
